FAERS Safety Report 16072817 (Version 1)
Quarter: 2019Q1

REPORT INFORMATION
  Report Type: Report from Study
  Country: US (occurrence: US)
  Receive Date: 20190314
  Receipt Date: 20190314
  Transmission Date: 20190418
  Serious: Yes (Other)
  Sender: FDA-Public Use
  Company Number: US-AMGEN INC.-USASL2019038049

PATIENT
  Age: 36 Year
  Sex: Female

DRUGS (1)
  1. AIMOVIG [Suspect]
     Active Substance: ERENUMAB-AOOE
     Indication: MIGRAINE WITHOUT AURA
     Dosage: 140 MILLIGRAM
     Route: 065
     Dates: start: 2018

REACTIONS (6)
  - Visual impairment [Unknown]
  - Palpitations [Unknown]
  - Seizure like phenomena [Unknown]
  - Vision blurred [Unknown]
  - Dyspnoea [Unknown]
  - Migraine [Unknown]

NARRATIVE: CASE EVENT DATE: 2018
